FAERS Safety Report 23199854 (Version 1)
Quarter: 2023Q4

REPORT INFORMATION
  Report Type: Spontaneous
  Country: US (occurrence: US)
  Receive Date: 20231117
  Receipt Date: 20231117
  Transmission Date: 20240109
  Serious: No
  Sender: FDA-Public Use
  Company Number: US-PFIZER INC-202300369216

PATIENT
  Age: 71 Year
  Sex: Male
  Weight: 100.7 kg

DRUGS (1)
  1. VYNDAMAX [Suspect]
     Active Substance: TAFAMIDIS
     Indication: Cardiac amyloidosis
     Dosage: 1 CAPSULE BY MOUTH DAILY, 61MG
     Route: 048
     Dates: start: 202310

REACTIONS (8)
  - Abdominal discomfort [Recovered/Resolved]
  - Flatulence [Recovered/Resolved]
  - Headache [Recovering/Resolving]
  - Chest pain [Unknown]
  - Dyspnoea [Recovering/Resolving]
  - Cough [Unknown]
  - Flatulence [Unknown]
  - Dyspepsia [Recovered/Resolved]

NARRATIVE: CASE EVENT DATE: 20231001
